FAERS Safety Report 9513556 (Version 1)
Quarter: 2013Q1

REPORT INFORMATION
  Report Type: Spontaneous
  Country: US (occurrence: None)
  Receive Date: 20130305
  Receipt Date: 20130305
  Transmission Date: 20140127
  Serious: Yes (Disabling, Other)
  Sender: FDA-Public Use
  Company Number: 163-21880-12102056

PATIENT
  Age: 69 Year
  Sex: Female
  Weight: 58.97 kg

DRUGS (17)
  1. REVLIMID [Suspect]
     Indication: CHRONIC LYMPHOCYTIC LEUKAEMIA
     Route: 048
     Dates: start: 201209
  2. REVLIMID [Suspect]
     Route: 048
     Dates: start: 201209
  3. RITUXAN (RITUXIMAB) [Concomitant]
  4. DEXAMETHASONE (DEXAMETHASONE) [Concomitant]
  5. VIVELLE-DOT (ESTRADIOL) [Concomitant]
  6. LEVOTHYROXIN (LEVOTHYROXINE SODIUM) [Concomitant]
  7. BENADRYL (DIPHENHYDRAMINE HYDROCHLORIDE) [Concomitant]
  8. CALCIUM + D(OS-CAL) [Concomitant]
  9. COSAMIN (COSAMIN) [Concomitant]
  10. DELSYM (DEXTROMETHORPHAN HYDROBROMIDE) [Concomitant]
  11. FISH OIL (FISH OIL) [Concomitant]
  12. KYTRIL (GRANISETRON) [Concomitant]
  13. LATISSE (BIMATOPROST) [Concomitant]
  14. VITAMINS [Concomitant]
  15. PROBIOTIC (BIFIDOBACTERIUM LACTIS) [Concomitant]
  16. TYLENOL (PARACETAMOL) [Concomitant]
  17. VITAMIN D (ERGOCALCIFEROL) [Concomitant]

REACTIONS (4)
  - Platelet count decreased [None]
  - Cough [None]
  - Abdominal pain upper [None]
  - Nausea [None]
